FAERS Safety Report 11486392 (Version 2)
Quarter: 2015Q4

REPORT INFORMATION
  Report Type: Spontaneous
  Country: US (occurrence: US)
  Receive Date: 20150910
  Receipt Date: 20151015
  Transmission Date: 20160304
  Serious: Yes (Other)
  Sender: FDA-Public Use
  Company Number: US-ASTRAZENECA-2015SE85371

PATIENT
  Sex: Male

DRUGS (2)
  1. SYMBICORT [Suspect]
     Active Substance: BUDESONIDE\FORMOTEROL FUMARATE DIHYDRATE
     Indication: CHRONIC OBSTRUCTIVE PULMONARY DISEASE
     Dosage: 160/4.5 MCG 2 TIMES A DAY
     Route: 055
     Dates: end: 2015
  2. SPIRIVA [Concomitant]
     Active Substance: TIOTROPIUM BROMIDE MONOHYDRATE

REACTIONS (8)
  - Migraine [Unknown]
  - Myocardial infarction [Unknown]
  - Hypokinesia [Unknown]
  - Stress [Unknown]
  - Adverse event [Unknown]
  - Musculoskeletal chest pain [Unknown]
  - Intentional product misuse [Unknown]
  - Chest pain [Unknown]

NARRATIVE: CASE EVENT DATE: 2015
